FAERS Safety Report 20201782 (Version 2)
Quarter: 2022Q2

REPORT INFORMATION
  Report Type: Spontaneous
  Country: US (occurrence: US)
  Receive Date: 20211217
  Receipt Date: 20220624
  Transmission Date: 20220721
  Serious: Yes (Disabling)
  Sender: FDA-Public Use
  Company Number: US-AMERICAN REGENT INC-2021003314

PATIENT
  Age: 40 Year
  Sex: Female
  Weight: 57.3 kg

DRUGS (14)
  1. FERRIC CARBOXYMALTOSE [Suspect]
     Active Substance: FERRIC CARBOXYMALTOSE
     Indication: Iron deficiency anaemia
     Dosage: 750 MILLIGRAM IN 100 ML OF 0.9% NSS, SINGLE
     Route: 042
     Dates: start: 20191113, end: 20191113
  2. FERRIC CARBOXYMALTOSE [Suspect]
     Active Substance: FERRIC CARBOXYMALTOSE
     Dosage: 750 MILLIGRAM IN 100 ML OF 0.9% NSS, SINGLE
     Route: 042
     Dates: start: 20191120, end: 20191120
  3. FERROUS GLUCONATE [Concomitant]
     Active Substance: FERROUS GLUCONATE
     Indication: Iron deficiency anaemia
     Dosage: 324 MILLIGRAM, TID WITH MEALS
     Route: 048
     Dates: start: 20181112, end: 20191231
  4. PROZAC [Concomitant]
     Active Substance: FLUOXETINE HYDROCHLORIDE
     Indication: Adjustment disorder with mixed anxiety and depressed mood
     Dosage: 40 MILLIGRAM, QD
     Route: 048
     Dates: start: 20190929, end: 20200824
  5. ALBUTEROL SULFATE [Concomitant]
     Active Substance: ALBUTEROL SULFATE
     Indication: Asthma
     Dosage: 108 (90 BASE) MCG/ACT, 2 PUFFS QID PRN
     Dates: end: 20201021
  6. BREO ELLIPTA [Concomitant]
     Active Substance: FLUTICASONE FUROATE\VILANTEROL TRIFENATATE
     Indication: Asthma
     Dosage: 200-25 MCG/INH AEPB, 1 PUFF
     Dates: end: 20210312
  7. DESYREL [Concomitant]
     Active Substance: TRAZODONE HYDROCHLORIDE
     Indication: Adjustment disorder with mixed anxiety and depressed mood
     Dosage: 50 MILLIGRAM EVERYDAY AT BEDTIME
     Route: 048
     Dates: start: 20191014, end: 20191223
  8. XANAX [Concomitant]
     Active Substance: ALPRAZOLAM
     Indication: Adjustment disorder with mixed anxiety and depressed mood
     Dosage: 0.5 MILLIGRAM, BID PRN
     Route: 048
     Dates: start: 20191107, end: 20191223
  9. XANAX [Concomitant]
     Active Substance: ALPRAZOLAM
     Indication: Sleep disorder
  10. HYDROXYZINE [Concomitant]
     Active Substance: HYDROXYZINE HYDROCHLORIDE
     Indication: Pruritus
     Dosage: 50 MILLIGRAM AT BEDTIME PRN
     Route: 048
     Dates: start: 20190909
  11. VITAMIN C [Concomitant]
     Active Substance: ASCORBIC ACID
     Indication: Iron deficiency anaemia
     Dosage: 250 MILLIGRAM, TID WITH IRON
     Route: 048
     Dates: start: 20190906
  12. ANTIVERT [Concomitant]
     Active Substance: MECLIZINE HYDROCHLORIDE
     Indication: Dizziness
     Dosage: 12.5 MILLIGRAM, TID PRN
     Route: 048
     Dates: start: 20181109
  13. ALLEGRA ALLERGY [Concomitant]
     Active Substance: FEXOFENADINE HYDROCHLORIDE
     Indication: Product used for unknown indication
     Dosage: 60 MILLIGRAM, QD
     Route: 048
  14. AUVI-Q [Concomitant]
     Active Substance: EPINEPHRINE
     Indication: Hypersensitivity
     Dosage: 0.3MG/0.3ML, INJECT AS DIRECTED IN OUTER THIGH
     Dates: end: 20211119

REACTIONS (8)
  - Pain [Recovered/Resolved]
  - Hypophosphataemia [Unknown]
  - Dyspnoea [Not Recovered/Not Resolved]
  - Tachycardia [Recovered/Resolved]
  - Anhedonia [Not Recovered/Not Resolved]
  - Emotional distress [Not Recovered/Not Resolved]
  - Anxiety [Not Recovered/Not Resolved]
  - Product quality issue [Unknown]

NARRATIVE: CASE EVENT DATE: 20191201
